FAERS Safety Report 24065947 (Version 1)
Quarter: 2024Q3

REPORT INFORMATION
  Report Type: Spontaneous
  Country: US (occurrence: None)
  Receive Date: 20240709
  Receipt Date: 20240709
  Transmission Date: 20241017
  Serious: No
  Sender: Public
  Company Number: None

PATIENT
  Age: 66 Year
  Sex: Female

DRUGS (1)
  1. COSENTYX [Suspect]
     Active Substance: SECUKINUMAB
     Indication: Psoriatic arthropathy
     Dosage: INJECT 300MG (1 PEN) SUBCUTANEOUSLY EVERY 4 WEEKS AS DIRECTED.   ?
     Route: 058
     Dates: start: 202403

REACTIONS (3)
  - Breast cyst [None]
  - Erythema [None]
  - Breast pain [None]
